FAERS Safety Report 7429001-6 (Version None)
Quarter: 2011Q2

REPORT INFORMATION
  Report Type: 
  Country: None (occurrence: None)
  Receive Date: 20110421
  Receipt Date: 20110413
  Transmission Date: 20111010
  Serious: Yes (Hospitalization)
  Sender: FDA-Public Use
  Company Number: US-B.I. PHARMACEUTICALS,INC./RIDGEFIELD-2010-BP-12885BP

PATIENT
  Age: 89 Year
  Sex: Male

DRUGS (9)
  1. TOPEROL [Concomitant]
     Indication: CARDIAC DISORDER
  2. TOPEROL [Concomitant]
     Indication: CARDIOPULMONARY BYPASS
  3. HIGH BLOOD PRESSURE MEDICATION [Concomitant]
  4. GLUCOPHAGE [Concomitant]
     Indication: DIABETES MELLITUS
  5. FLOMAX [Suspect]
     Indication: PROSTATOMEGALY
     Dosage: 0.4 MG
     Route: 048
  6. HEART MEDICATION [Concomitant]
  7. GLUCOTROL [Concomitant]
     Indication: DIABETES MELLITUS
  8. DIABETES MEDICATION [Concomitant]
  9. PROSTATE MEDICATION [Concomitant]

REACTIONS (6)
  - INCREASED UPPER AIRWAY SECRETION [None]
  - TRANSIENT ISCHAEMIC ATTACK [None]
  - COUGH [None]
  - RHINORRHOEA [None]
  - DECUBITUS ULCER [None]
  - ABASIA [None]
